FAERS Safety Report 12898855 (Version 9)
Quarter: 2018Q4

REPORT INFORMATION
  Report Type: Spontaneous
  Country: CA (occurrence: CA)
  Receive Date: 20161101
  Receipt Date: 20181212
  Transmission Date: 20190204
  Serious: Yes (Other)
  Sender: FDA-Public Use
  Company Number: CA-ROCHE-1847317

PATIENT
  Age: 37 Year
  Sex: Male

DRUGS (13)
  1. XOLAIR [Suspect]
     Active Substance: OMALIZUMAB
     Route: 058
     Dates: start: 20160509
  2. XOLAIR [Suspect]
     Active Substance: OMALIZUMAB
     Route: 058
     Dates: start: 20161012
  3. XOLAIR [Suspect]
     Active Substance: OMALIZUMAB
     Route: 058
     Dates: start: 20180103
  4. XOLAIR [Suspect]
     Active Substance: OMALIZUMAB
     Route: 058
     Dates: start: 20180313
  5. XOLAIR [Suspect]
     Active Substance: OMALIZUMAB
     Route: 058
     Dates: start: 20160208
  6. XOLAIR [Suspect]
     Active Substance: OMALIZUMAB
     Route: 058
     Dates: start: 20160829
  7. XOLAIR [Suspect]
     Active Substance: OMALIZUMAB
     Route: 058
     Dates: start: 20170508
  8. XOLAIR [Suspect]
     Active Substance: OMALIZUMAB
     Route: 058
     Dates: start: 20180329
  9. XOLAIR [Suspect]
     Active Substance: OMALIZUMAB
     Route: 058
     Dates: start: 20160815
  10. XOLAIR [Suspect]
     Active Substance: OMALIZUMAB
     Indication: ASTHMA
     Route: 058
     Dates: start: 20110301
  11. XOLAIR [Suspect]
     Active Substance: OMALIZUMAB
     Route: 058
     Dates: start: 20161107
  12. XOLAIR [Suspect]
     Active Substance: OMALIZUMAB
     Route: 058
     Dates: start: 20161024
  13. XOLAIR [Suspect]
     Active Substance: OMALIZUMAB
     Route: 058
     Dates: start: 20181120

REACTIONS (29)
  - Cough [Unknown]
  - Diarrhoea [Unknown]
  - Hyperhidrosis [Unknown]
  - Myalgia [Unknown]
  - Nasal congestion [Recovering/Resolving]
  - Oropharyngeal pain [Unknown]
  - Ear discomfort [Unknown]
  - Skin laceration [Unknown]
  - Increased viscosity of bronchial secretion [Unknown]
  - Blood pressure systolic increased [Unknown]
  - Pyrexia [Unknown]
  - Fatigue [Unknown]
  - Productive cough [Unknown]
  - Throat irritation [Unknown]
  - Body temperature decreased [Unknown]
  - Headache [Unknown]
  - Feeling hot [Unknown]
  - Seasonal allergy [Unknown]
  - Neck pain [Unknown]
  - Malaise [Unknown]
  - Influenza [Unknown]
  - Nasopharyngitis [Recovering/Resolving]
  - Poor quality sleep [Unknown]
  - Migraine [Unknown]
  - Rhinorrhoea [Unknown]
  - Lower respiratory tract congestion [Unknown]
  - Blood cholesterol [Unknown]
  - Weight decreased [Unknown]
  - Chills [Unknown]

NARRATIVE: CASE EVENT DATE: 201202
